FAERS Safety Report 11630293 (Version 1)
Quarter: 2015Q4

REPORT INFORMATION
  Report Type: Not Available
  Country: SG (occurrence: SG)
  Receive Date: 20151014
  Receipt Date: 20151014
  Transmission Date: 20160304
  Serious: Yes (Hospitalization)
  Sender: FDA-Public Use
  Company Number: SG-ANIPHARMA-2015-SG-000001

PATIENT
  Age: 56 Year
  Sex: Male

DRUGS (3)
  1. LITHIUM CARBONATE (NON-SPECIFIC) [Suspect]
     Active Substance: LITHIUM
     Dosage: 400 MG TWICE DAILY
  2. ENALAPRIL [Suspect]
     Active Substance: ENALAPRIL
  3. FLUVOXAMINE [Suspect]
     Active Substance: FLUVOXAMINE

REACTIONS (7)
  - Hepatic enzyme increased [Recovered/Resolved]
  - Bradycardia [Recovered/Resolved]
  - Drug interaction [Recovered/Resolved]
  - Toxicity to various agents [Recovered/Resolved]
  - Hyponatraemia [Recovered/Resolved]
  - Hypotension [Recovered/Resolved]
  - Blood creatinine increased [Recovered/Resolved]
